FAERS Safety Report 5161451-3 (Version None)
Quarter: 2006Q4

REPORT INFORMATION
  Report Type: 
  Country: None (occurrence: None)
  Receive Date: 20061130
  Receipt Date: 20060810
  Transmission Date: 20070319
  Serious: No
  Sender: FDA-Public Use
  Company Number: US-GLAXOSMITHKLINE-A0616139A

PATIENT
  Age: 25 Year
  Sex: Female

DRUGS (5)
  1. WELLBUTRIN XL [Suspect]
     Indication: BIPOLAR DISORDER
     Route: 048
     Dates: start: 20060803
  2. GEODON [Concomitant]
  3. TOPAMAX [Concomitant]
  4. ASCORBIC ACID [Concomitant]
  5. MELATONIN [Concomitant]

REACTIONS (2)
  - DIZZINESS [None]
  - VERTIGO [None]
